FAERS Safety Report 17612534 (Version 1)
Quarter: 2020Q2

REPORT INFORMATION
  Report Type: Spontaneous
  Country: US (occurrence: US)
  Receive Date: 20200401
  Receipt Date: 20200401
  Transmission Date: 20200713
  Serious: No
  Sender: FDA-Public Use
  Company Number: US-BRISTOL-MYERS SQUIBB COMPANY-BMS-2020-025633

PATIENT
  Age: 54 Year
  Sex: Male

DRUGS (1)
  1. ELIQUIS [Suspect]
     Active Substance: APIXABAN
     Indication: CAROTID ARTERY THROMBOSIS
     Dosage: 5 MILLIGRAM, BID
     Route: 065
     Dates: start: 20200322

REACTIONS (1)
  - Intentional product use issue [Unknown]
